FAERS Safety Report 9332900 (Version 1)
Quarter: 2013Q2

REPORT INFORMATION
  Report Type: Spontaneous
  Country: IT (occurrence: IT)
  Receive Date: 20130606
  Receipt Date: 20130606
  Transmission Date: 20140414
  Serious: Yes (Hospitalization)
  Sender: FDA-Public Use
  Company Number: IT-MYLANLABS-2013S1011470

PATIENT
  Age: 87 Year
  Sex: Female

DRUGS (10)
  1. BISOPROLOL FUMERATE [Suspect]
     Indication: PRODUCT USED FOR UNKNOWN INDICATION
     Route: 048
     Dates: start: 20130101, end: 20130518
  2. ALDACTONE [Suspect]
     Indication: PRODUCT USED FOR UNKNOWN INDICATION
     Route: 048
     Dates: start: 20130101, end: 20130518
  3. LASIX [Concomitant]
     Indication: PRODUCT USED FOR UNKNOWN INDICATION
     Dosage: ^ 25 MG TABLETS^ 30 TABLETS
  4. CARDIOASPIRIN [Concomitant]
     Indication: PRODUCT USED FOR UNKNOWN INDICATION
     Dosage: ^100 MG GASTRO-RESISTANT TABLETS^ 30 TABLETS
  5. URIVESC [Concomitant]
     Indication: PRODUCT USED FOR UNKNOWN INDICATION
     Dosage: ^60 MG HARD CAPSULES PROLONGED-RELEASE^ 56 CAPSULES IN BLISTER PVC/AL
  6. VASEXTEN [Concomitant]
     Indication: PRODUCT USED FOR UNKNOWN INDICATION
     Dosage: 28 MODIFIED-RELEASE CAPSULES IN BLISTER PVC/AL OF 10MG
  7. ANTRA /00661201/ [Concomitant]
     Indication: PRODUCT USED FOR UNKNOWN INDICATION
     Dosage: ^20 MG HARD CAPSULES PROLONGED-RELEASE^ 14 CAPSULES
  8. CRESTOR [Concomitant]
     Indication: PRODUCT USED FOR UNKNOWN INDICATION
     Dosage: 28 FILM-COATED CAPSULES IN BLISTER OF 10 MG
  9. CATAPRESAN [Concomitant]
     Indication: PRODUCT USED FOR UNKNOWN INDICATION
     Dosage: CATAPRESAN TTS  ^TTS - 2-5 TRANSDERMAL PATCHES^ 2 TRANSDERMAL PATCHES + 2 COVER PATCHES
  10. RAMIPRIL [Concomitant]
     Indication: HYPERTENSION

REACTIONS (4)
  - Asthenia [Recovered/Resolved with Sequelae]
  - Hyperkalaemia [Recovered/Resolved with Sequelae]
  - Nodal arrhythmia [Recovered/Resolved with Sequelae]
  - Vertigo [Recovered/Resolved with Sequelae]
